FAERS Safety Report 7628388-9 (Version None)
Quarter: 2011Q3

REPORT INFORMATION
  Report Type: 
  Country: None (occurrence: None)
  Receive Date: 20110722
  Receipt Date: 20110720
  Transmission Date: 20111222
  Serious: No
  Sender: FDA-Public Use
  Company Number: US-PFIZER INC-2011161118

PATIENT
  Sex: Female
  Weight: 122.45 kg

DRUGS (3)
  1. EFFEXOR XR [Suspect]
     Indication: ANXIETY
     Dosage: 300 MG, 1X/DAY
     Route: 048
     Dates: start: 20030101
  2. EFFEXOR XR [Suspect]
     Dosage: UNK
  3. ATENOLOL [Concomitant]
     Indication: HYPERTENSION
     Dosage: 1 MG, 1X/DAY

REACTIONS (2)
  - UNEVALUABLE EVENT [None]
  - ANXIETY [None]
